FAERS Safety Report 7062911-0 (Version None)
Quarter: 2010Q4

REPORT INFORMATION
  Report Type: 
  Country: None (occurrence: None)
  Receive Date: 20101026
  Receipt Date: 20100218
  Transmission Date: 20110411
  Serious: No
  Sender: FDA-Public Use
  Company Number: US-PFIZER INC-2010021925

PATIENT
  Sex: Female
  Weight: 77.1 kg

DRUGS (6)
  1. LIPITOR [Suspect]
     Indication: BLOOD CHOLESTEROL ABNORMAL
     Dosage: 10 MG, 1X/DAY
     Route: 048
  2. ACTONEL [Concomitant]
     Dosage: 35 MG, WEEKLY
     Route: 048
  3. PRINZIDE [Concomitant]
     Indication: BLOOD PRESSURE ABNORMAL
     Dosage: 20 MG, 1X/DAY
     Dates: start: 20080101
  4. CALCIUM [Concomitant]
     Dosage: UNK
     Route: 048
  5. CENTRUM SILVER [Concomitant]
     Indication: VITAMIN SUPPLEMENTATION
     Dosage: UNK
     Route: 048
  6. VITAMIN D [Concomitant]
     Dosage: 400 IU, 1X/DAY
     Route: 048
     Dates: start: 20090101

REACTIONS (1)
  - MYALGIA [None]
